FAERS Safety Report 14782314 (Version 1)
Quarter: 2018Q2

REPORT INFORMATION
  Report Type: Spontaneous
  Country: FR (occurrence: FR)
  Receive Date: 20180420
  Receipt Date: 20180420
  Transmission Date: 20180711
  Serious: Yes (Other)
  Sender: FDA-Public Use
  Company Number: FR-MERCK KGAA-2046118

PATIENT
  Age: 38 Year
  Sex: Male
  Weight: 75 kg

DRUGS (1)
  1. NOVOTHYROX [Suspect]
     Active Substance: LEVOTHYROXINE SODIUM
     Indication: PRODUCT USED FOR UNKNOWN INDICATION

REACTIONS (27)
  - Dyspnoea [Recovered/Resolved]
  - Headache [None]
  - Memory impairment [None]
  - Loss of personal independence in daily activities [None]
  - Aggression [None]
  - Blood thyroid stimulating hormone increased [None]
  - Tension [None]
  - Pain [None]
  - Chest discomfort [None]
  - Muscle spasms [None]
  - Apathy [None]
  - Chest pain [None]
  - Irritability [None]
  - Depression [None]
  - Decreased interest [None]
  - Speech disorder [None]
  - Frustration tolerance decreased [None]
  - Personal relationship issue [None]
  - Mood altered [None]
  - Neck pain [None]
  - Loss of libido [None]
  - Weight increased [None]
  - Myalgia [None]
  - Impulsive behaviour [None]
  - Asthenia [None]
  - Fatigue [None]
  - Learning disorder [None]

NARRATIVE: CASE EVENT DATE: 2017
